FAERS Safety Report 15811135 (Version 1)
Quarter: 2019Q1

REPORT INFORMATION
  Report Type: Other
  Country: GB (occurrence: IT)
  Receive Date: 20190111
  Receipt Date: 20190111
  Transmission Date: 20190417
  Serious: Yes (Other)
  Sender: FDA-Public Use
  Company Number: GB-DIMETHAID UK LIMITED-DIM-001002-2019

PATIENT
  Age: 26 Year
  Sex: Female

DRUGS (3)
  1. PARACETAMOL [Concomitant]
     Active Substance: ACETAMINOPHEN
     Indication: PRODUCT USED FOR UNKNOWN INDICATION
     Dosage: UNK
     Route: 065
  2. DICLOFENAC SODIUM. [Suspect]
     Active Substance: DICLOFENAC SODIUM
     Indication: BACK PAIN
     Dosage: 1 DF, SINGLE (IN TOTAL)
     Route: 065
     Dates: start: 20181106, end: 20181106
  3. THIOCOLCHICOSIDE [Suspect]
     Active Substance: THIOCOLCHICOSIDE
     Indication: BACK PAIN
     Dosage: 1 DF, SINGLE (IN TOTAL)
     Route: 065
     Dates: start: 20181106, end: 20181106

REACTIONS (6)
  - Rash [Recovering/Resolving]
  - Product use in unapproved indication [Recovered/Resolved]
  - Urticaria [Recovering/Resolving]
  - Product administered at inappropriate site [Recovered/Resolved]
  - Skin lesion [Recovering/Resolving]
  - Hyperaemia [Recovering/Resolving]

NARRATIVE: CASE EVENT DATE: 20181106
